FAERS Safety Report 19233096 (Version 3)
Quarter: 2021Q3

REPORT INFORMATION
  Report Type: Report from Study
  Country: JP (occurrence: JP)
  Receive Date: 20210507
  Receipt Date: 20210903
  Transmission Date: 20211014
  Serious: Yes (Hospitalization, Disabling)
  Sender: FDA-Public Use
  Company Number: JP-ALNYLAM PHARMACEUTICALS, INC.-ALN-2021-001035

PATIENT

DRUGS (9)
  1. GASTER [Concomitant]
     Active Substance: FAMOTIDINE
     Indication: PROPHYLAXIS
     Dosage: 20 MILLIGRAM
     Route: 042
     Dates: start: 20201009, end: 20210217
  2. PANVITAN [Concomitant]
     Active Substance: VITAMINS
     Indication: VITAMIN SUPPLEMENTATION
     Dosage: 1 GRAM, QD
     Route: 048
     Dates: start: 20201009, end: 20210217
  3. NEUROVITAN [Concomitant]
     Active Substance: VITAMINS
     Indication: HEREDITARY NEUROPATHIC AMYLOIDOSIS
     Dosage: 2 DOSAGE FORM
     Route: 048
     Dates: end: 20210217
  4. DOPS [Concomitant]
     Active Substance: DROXIDOPA
     Indication: HEREDITARY NEUROPATHIC AMYLOIDOSIS
     Dosage: 300 MILLIGRAM
     Route: 048
     Dates: end: 20210217
  5. ONPATTRO [Suspect]
     Active Substance: PATISIRAN SODIUM
     Indication: HEREDITARY NEUROPATHIC AMYLOIDOSIS
     Dosage: 17.4 MILLIGRAM
     Route: 041
     Dates: start: 20201009, end: 20210217
  6. POLARAMINE [Concomitant]
     Active Substance: DEXCHLORPHENIRAMINE MALEATE
     Indication: PROPHYLAXIS
     Dosage: 5 MILLIGRAM
     Route: 042
     Dates: start: 20201009, end: 20210217
  7. DEXART [Concomitant]
     Active Substance: DEXAMETHASONE SODIUM PHOSPHATE
     Indication: PROPHYLAXIS
     Dosage: 9.9 MILLIGRAM
     Route: 042
     Dates: start: 20201009, end: 20210217
  8. CALONAL [Concomitant]
     Active Substance: ACETAMINOPHEN
     Indication: PROPHYLAXIS
     Dosage: 500 MILLIGRAM
     Route: 048
     Dates: start: 20201009, end: 20210217
  9. BIO?THREE [Concomitant]
     Active Substance: HERBALS
     Indication: HEREDITARY NEUROPATHIC AMYLOIDOSIS
     Dosage: 3 DOSAGE FORM
     Route: 048
     Dates: end: 20210217

REACTIONS (3)
  - Femur fracture [Recovering/Resolving]
  - Fall [Recovering/Resolving]
  - Cerebral infarction [Recovered/Resolved with Sequelae]

NARRATIVE: CASE EVENT DATE: 20210302
